FAERS Safety Report 13601183 (Version 1)
Quarter: 2017Q2

REPORT INFORMATION
  Report Type: Spontaneous
  Country: TR (occurrence: TR)
  Receive Date: 20170601
  Receipt Date: 20170601
  Transmission Date: 20170830
  Serious: Yes (Other)
  Sender: FDA-Public Use
  Company Number: PHHY2017TR077799

PATIENT
  Age: 52 Year
  Sex: Male

DRUGS (2)
  1. FINGYA [Suspect]
     Active Substance: FINGOLIMOD
     Indication: MULTIPLE SCLEROSIS
     Dosage: UNK
     Route: 048
     Dates: start: 2012, end: 201606
  2. FINGYA [Suspect]
     Active Substance: FINGOLIMOD
     Dosage: UNK
     Route: 048
     Dates: start: 1216

REACTIONS (5)
  - JC virus test positive [Unknown]
  - Multiple sclerosis relapse [Unknown]
  - Blood cholesterol increased [Unknown]
  - Blood pressure increased [Unknown]
  - Gait disturbance [Unknown]

NARRATIVE: CASE EVENT DATE: 201606
